FAERS Safety Report 5060546-2 (Version None)
Quarter: 2006Q3

REPORT INFORMATION
  Report Type: 
  Country: None (occurrence: None)
  Receive Date: 20060719
  Receipt Date: 20060719
  Transmission Date: 20061208
  Serious: Yes (Death, Hospitalization)
  Sender: FDA-Public Use
  Company Number: None

PATIENT
  Age: 79 Year
  Sex: Male
  Weight: 63.5036 kg

DRUGS (4)
  1. VIDAZA [Suspect]
     Indication: MYELODYSPLASTIC SYNDROME
     Dosage: VARIED DOSE   DAILY X 7 D0SES   IM
     Route: 030
     Dates: start: 20060103, end: 20060111
  2. LIPITOR [Concomitant]
  3. ATIVAN [Concomitant]
  4. BLOOD PRESSURE MEDICATION (NAME UNKNOWN) [Concomitant]

REACTIONS (4)
  - CEREBROVASCULAR ACCIDENT [None]
  - HAEMORRHAGE [None]
  - PNEUMONIA [None]
  - SEPSIS [None]
